FAERS Safety Report 24559094 (Version 3)
Quarter: 2024Q4

REPORT INFORMATION
  Report Type: Spontaneous
  Country: US (occurrence: US)
  Receive Date: 20241029
  Receipt Date: 20241227
  Transmission Date: 20250115
  Serious: No
  Sender: RISING PHARMACEUTICALS
  Company Number: US-RISINGPHARMA-US-2024RISSPO00383

PATIENT
  Age: 47 Year
  Sex: Male

DRUGS (2)
  1. FENOFIBRATE [Suspect]
     Active Substance: FENOFIBRATE
     Indication: Blood cholesterol
     Route: 048
  2. ROSUVASTATIN [Concomitant]
     Active Substance: ROSUVASTATIN
     Indication: Product used for unknown indication
     Route: 065

REACTIONS (4)
  - Renal pain [Unknown]
  - Chromaturia [Unknown]
  - Arthralgia [Unknown]
  - Product odour abnormal [Unknown]
